FAERS Safety Report 17425107 (Version 1)
Quarter: 2020Q1

REPORT INFORMATION
  Report Type: Spontaneous
  Country: US (occurrence: US)
  Receive Date: 20200217
  Receipt Date: 20200217
  Transmission Date: 20200409
  Serious: No
  Sender: FDA-Public Use
  Company Number: US-MYLANLABS-2020M1014509

PATIENT
  Sex: Male
  Weight: 104 kg

DRUGS (2)
  1. LEVOTHYROXINE SODIUM TABLETS, USP [Suspect]
     Active Substance: LEVOTHYROXINE SODIUM
     Dosage: ONE TABLET A DAY
     Route: 048
     Dates: start: 2019
  2. LEVOTHYROXINE SODIUM TABLETS, USP [Suspect]
     Active Substance: LEVOTHYROXINE SODIUM
     Indication: THYROID DISORDER
     Dosage: ONE TABLET A DAY
     Route: 048

REACTIONS (2)
  - Drug ineffective [Unknown]
  - Sleep disorder [Recovering/Resolving]

NARRATIVE: CASE EVENT DATE: 2019
